FAERS Safety Report 23736772 (Version 1)
Quarter: 2024Q2

REPORT INFORMATION
  Report Type: Other
  Country: TR (occurrence: TR)
  Receive Date: 20240412
  Receipt Date: 20240412
  Transmission Date: 20240715
  Serious: Yes (Hospitalization)
  Sender: FDA-Public Use
  Company Number: TR-ALVOGEN-2024093878

PATIENT
  Age: 23 Year
  Sex: Female

DRUGS (11)
  1. VORICONAZOLE [Suspect]
     Active Substance: VORICONAZOLE
     Indication: Allergic fungal rhinosinusitis
     Dosage: LOADING DOSE OF 6 MG/KG/12 H ?MIC VALUE 8 MG/L
     Route: 042
     Dates: start: 20201214, end: 20210111
  2. VORICONAZOLE [Suspect]
     Active Substance: VORICONAZOLE
     Indication: Allergic fungal rhinosinusitis
     Dosage: MAINTENANCE DOSE OF 4 MG/KG/12 H EVERY 12 H?MIC VALUE 8 MG/L
     Route: 042
     Dates: start: 20201214, end: 20210111
  3. VENETOCLAX [Suspect]
     Active Substance: VENETOCLAX
     Indication: Chemotherapy
     Dates: start: 20210111
  4. AMPHOTERICIN B [Concomitant]
     Active Substance: AMPHOTERICIN B
     Indication: Chemotherapy
     Dates: start: 20201211
  5. AMPHOTERICIN B [Concomitant]
     Active Substance: AMPHOTERICIN B
     Indication: Chemotherapy
     Dosage: DOSE INCREASED ON 11-JAN-20221
  6. ITRACONAZOLE [Concomitant]
     Active Substance: ITRACONAZOLE
     Indication: Chemotherapy
  7. POSACONAZOLE [Concomitant]
     Active Substance: POSACONAZOLE
     Indication: Chemotherapy
     Dosage: MIC VALUE 8 MG/L
  8. FLUDARABINE [Concomitant]
     Active Substance: FLUDARABINE PHOSPHATE
     Indication: Chemotherapy
     Dates: start: 20201216
  9. CYTARABINE [Concomitant]
     Active Substance: CYTARABINE
     Indication: Chemotherapy
     Dates: start: 20201216
  10. IDARUBICIN [Concomitant]
     Active Substance: IDARUBICIN
     Indication: Chemotherapy
     Dates: start: 20201216
  11. CSF [Concomitant]
     Indication: Chemotherapy
     Dates: start: 20201216

REACTIONS (1)
  - Drug interaction [Unknown]
